FAERS Safety Report 9508890 (Version 2)
Quarter: 2013Q3

REPORT INFORMATION
  Report Type: Spontaneous
  Country: US (occurrence: US)
  Receive Date: 20130909
  Receipt Date: 20130909
  Transmission Date: 20140515
  Serious: No
  Sender: FDA-Public Use
  Company Number: US-BRISTOL-MYERS SQUIBB COMPANY-19051564

PATIENT
  Age: 33 Year
  Sex: Female

DRUGS (3)
  1. ABILIFY TABS [Suspect]
     Dosage: THERAPY TO JUN13.
     Route: 048
     Dates: start: 201109, end: 201306
  2. ABILIFY INJECTION [Suspect]
     Indication: SCHIZOPHRENIA, PARANOID TYPE
     Route: 030
     Dates: start: 20130614
  3. DEPAKOTE [Suspect]

REACTIONS (1)
  - Pregnancy [Unknown]
